FAERS Safety Report 11806035 (Version 6)
Quarter: 2017Q3

REPORT INFORMATION
  Report Type: Report from Study
  Country: JP (occurrence: JP)
  Receive Date: 20151207
  Receipt Date: 20170721
  Transmission Date: 20171127
  Serious: Yes (Hospitalization, Other)
  Sender: FDA-Public Use
  Company Number: PHJP2015JP021541

PATIENT
  Age: 8 Year
  Sex: Female
  Weight: 25.8 kg

DRUGS (43)
  1. ILARIS [Suspect]
     Active Substance: CANAKINUMAB
     Dosage: 150 MG, UNK
     Route: 058
     Dates: start: 20150123
  2. ILARIS [Suspect]
     Active Substance: CANAKINUMAB
     Dosage: 150 MG, UNK
     Route: 058
     Dates: start: 20150605
  3. ILARIS [Suspect]
     Active Substance: CANAKINUMAB
     Dosage: 150 MG, UNK
     Route: 058
     Dates: start: 20151211
  4. ILARIS [Suspect]
     Active Substance: CANAKINUMAB
     Dosage: 150 MG, UNK
     Route: 058
     Dates: start: 20150513
  5. PREDNISOLONE. [Suspect]
     Active Substance: PREDNISOLONE
     Dosage: 17 MG, UNK
     Route: 048
     Dates: start: 20150425
  6. DIAMOX SEQUELS [Concomitant]
     Active Substance: ACETAZOLAMIDE
     Indication: GLAUCOMA
     Dosage: 375 MG, UNK
     Route: 048
     Dates: start: 20150107, end: 20150409
  7. DIAMOX SEQUELS [Concomitant]
     Active Substance: ACETAZOLAMIDE
     Dosage: 250 MG, UNK
     Route: 048
     Dates: start: 20150410, end: 20150507
  8. GLUCONSAN K [Concomitant]
     Active Substance: POTASSIUM GLUCONATE
     Indication: PROPHYLAXIS
     Dosage: 0.25 G, UNK
     Route: 048
     Dates: start: 20150107, end: 20150507
  9. HYALEIN [Concomitant]
     Active Substance: HYALURONATE SODIUM
     Indication: MUCKLE-WELLS SYNDROME
     Dosage: UNK
     Route: 047
  10. INFLIXIMAB [Concomitant]
     Active Substance: INFLIXIMAB
     Indication: MUCKLE-WELLS SYNDROME
     Dosage: UNK
     Route: 065
     Dates: start: 20110315, end: 20121222
  11. DAINATEC [Concomitant]
     Indication: GLAUCOMA
     Dosage: UNK
     Route: 047
  12. REBAMIPIDE [Concomitant]
     Active Substance: REBAMIPIDE
     Indication: PROPHYLAXIS
     Dosage: 100 MG, UNK
     Route: 048
  13. ILARIS [Suspect]
     Active Substance: CANAKINUMAB
     Indication: MUCKLE-WELLS SYNDROME
     Dosage: 50 MG, UNK
     Route: 058
     Dates: start: 20141010
  14. ILARIS [Suspect]
     Active Substance: CANAKINUMAB
     Dosage: 150 MG, UNK
     Route: 058
     Dates: start: 20150226
  15. ILARIS [Suspect]
     Active Substance: CANAKINUMAB
     Dosage: 150 MG, UNK
     Route: 058
     Dates: start: 20160701
  16. PREDNISOLONE. [Suspect]
     Active Substance: PREDNISOLONE
     Indication: MUCKLE-WELLS SYNDROME
     Dosage: 30 MG, UNK
     Route: 048
     Dates: end: 20150108
  17. PREDNISOLONE. [Suspect]
     Active Substance: PREDNISOLONE
     Dosage: 30 MG, UNK
     Route: 048
     Dates: start: 20150113, end: 20150424
  18. TARIVID OPHTHALMIC [Concomitant]
     Active Substance: OFLOXACIN
     Indication: MUCKLE-WELLS SYNDROME
     Dosage: UNK
     Route: 047
  19. ILARIS [Suspect]
     Active Substance: CANAKINUMAB
     Dosage: 150 MG, UNK
     Route: 058
     Dates: start: 20150731
  20. BAKTAR [Concomitant]
     Active Substance: SULFAMETHOXAZOLE\TRIMETHOPRIM
     Indication: PROPHYLAXIS
     Dosage: 1 DF, UNK
     Route: 048
  21. MORPHINE [Concomitant]
     Active Substance: MORPHINE
     Indication: MUCKLE-WELLS SYNDROME
     Dosage: 50 MG, UNK
     Route: 048
  22. METHOTREXATE. [Concomitant]
     Active Substance: METHOTREXATE
     Indication: MUCKLE-WELLS SYNDROME
     Dosage: 15 MG, UNK
     Route: 048
     Dates: end: 20150409
  23. NASEA [Concomitant]
     Active Substance: RAMOSETRON HYDROCHLORIDE
     Indication: PROPHYLAXIS
     Dosage: 1 DF, UNK
     Route: 048
  24. RIPASUDIL HYDROCHLORIDE DIHYDRATE [Concomitant]
     Active Substance: RIPASUDIL HYDROCHLORIDE DIHYDRATE
     Indication: GLAUCOMA
     Dosage: UNK
     Route: 047
  25. TOCILIZUMAB. [Concomitant]
     Active Substance: TOCILIZUMAB
     Indication: MUCKLE-WELLS SYNDROME
     Dosage: UNK
     Route: 065
     Dates: start: 20130122, end: 20140909
  26. IBUPROFEN. [Concomitant]
     Active Substance: IBUPROFEN
     Indication: MUCKLE-WELLS SYNDROME
     Dosage: 800 MG, UNK
     Route: 048
  27. ILARIS [Suspect]
     Active Substance: CANAKINUMAB
     Dosage: 150 MG, UNK
     Route: 058
     Dates: start: 20150424
  28. MUCOSTA [Concomitant]
     Active Substance: REBAMIPIDE
     Indication: PROPHYLAXIS
     Dosage: 100 MG, UNK
     Route: 048
  29. COSOPT [Concomitant]
     Active Substance: DORZOLAMIDE HYDROCHLORIDE\TIMOLOL MALEATE
     Indication: GLAUCOMA
     Dosage: UNK
     Route: 047
  30. ALPHAGAN P [Concomitant]
     Active Substance: BRIMONIDINE TARTRATE
     Indication: GLAUCOMA
     Dosage: UNK
     Route: 047
  31. TRAVATAN Z [Concomitant]
     Active Substance: TRAVOPROST
     Indication: GLAUCOMA
     Dosage: UNK
     Route: 047
  32. ILARIS [Suspect]
     Active Substance: CANAKINUMAB
     Dosage: 150 MG, UNK
     Route: 058
     Dates: start: 20160325
  33. HEAVY MAGNESIUM OXIDE [Concomitant]
     Active Substance: MAGNESIUM OXIDE
     Indication: PROPHYLAXIS
     Dosage: 0.7 G, UNK
     Route: 048
  34. ILARIS [Suspect]
     Active Substance: CANAKINUMAB
     Dosage: 150 MG, UNK
     Route: 058
     Dates: start: 20150918, end: 20150918
  35. ILARIS [Suspect]
     Active Substance: CANAKINUMAB
     Dosage: 150 MG, UNK
     Route: 058
     Dates: start: 20160819, end: 20160819
  36. ILARIS [Suspect]
     Active Substance: CANAKINUMAB
     Dosage: 150 MG, UNK
     Route: 058
     Dates: start: 20161021
  37. CALONAL [Concomitant]
     Active Substance: ACETAMINOPHEN
     Indication: MUCKLE-WELLS SYNDROME
     Dosage: 1400 MG, UNK
     Route: 048
  38. ZYRTEC [Concomitant]
     Active Substance: CETIRIZINE HYDROCHLORIDE
     Indication: MUCKLE-WELLS SYNDROME
     Dosage: 3 MG, UNK
     Route: 048
  39. ILARIS [Suspect]
     Active Substance: CANAKINUMAB
     Dosage: 100 MG, UNK
     Route: 058
     Dates: start: 20141205
  40. BRUFEN ^ABBOTT^ [Concomitant]
     Active Substance: IBUPROFEN
     Indication: MUCKLE-WELLS SYNDROME
     Dosage: 800 MG, UNK
     Route: 048
  41. METHOTREXATE. [Concomitant]
     Active Substance: METHOTREXATE
     Dosage: 7 MG, UNK
     Route: 048
     Dates: start: 20150410
  42. ILARIS [Suspect]
     Active Substance: CANAKINUMAB
     Dosage: 150 MG, UNK
     Route: 058
     Dates: start: 20160205
  43. PREDNISOLONE. [Suspect]
     Active Substance: PREDNISOLONE
     Dosage: 17 MG, UNK
     Route: 048
     Dates: start: 20150109, end: 20150112

REACTIONS (12)
  - Rhabdomyosarcoma [Unknown]
  - Subcutaneous abscess [Recovered/Resolved]
  - Pericoronitis [Recovered/Resolved]
  - Perichondritis [Not Recovered/Not Resolved]
  - Subcutaneous abscess [Recovered/Resolved]
  - Swelling face [Unknown]
  - Eye swelling [Recovering/Resolving]
  - Ear neoplasm [Unknown]
  - Bone loss [Unknown]
  - Pericoronitis [Recovered/Resolved]
  - Bronchitis [Recovered/Resolved]
  - Perichondritis [Recovered/Resolved]

NARRATIVE: CASE EVENT DATE: 20150522
